FAERS Safety Report 4368278-0 (Version None)
Quarter: 2004Q2

REPORT INFORMATION
  Report Type: 
  Country: None (occurrence: None)
  Receive Date: 20040525
  Receipt Date: 20040514
  Transmission Date: 20050107
  Serious: Yes (Other)
  Sender: FDA-Public Use
  Company Number: HQWYE946112FEB04

PATIENT
  Age: 78 Year
  Sex: Male
  Weight: 78.09 kg

DRUGS (1)
  1. PROTONIX [Suspect]
     Indication: GASTROOESOPHAGEAL REFLUX DISEASE
     Dosage: 40 MG 1 X PER 1 DAY, ORAL
     Route: 048
     Dates: start: 20030901, end: 20030916

REACTIONS (3)
  - DIABETES MELLITUS NON-INSULIN-DEPENDENT [None]
  - TOXIC EPIDERMAL NECROLYSIS [None]
  - WEIGHT DECREASED [None]
